FAERS Safety Report 4930476-2 (Version None)
Quarter: 2006Q1

REPORT INFORMATION
  Report Type: 
  Country: None (occurrence: None)
  Receive Date: 20060118
  Receipt Date: 20050816
  Transmission Date: 20060701
  Serious: No
  Sender: FDA-Public Use
  Company Number: 2005001610

PATIENT
  Sex: Male

DRUGS (5)
  1. TARCEVA [Suspect]
     Indication: NON-SMALL CELL LUNG CANCER
     Dosage: 150 MG (QD), ORAL
     Route: 048
     Dates: start: 20050616
  2. FLUDROCORTISONE ACETATE [Concomitant]
  3. CLONAZEPAM [Concomitant]
  4. FLUOXETINE [Concomitant]
  5. MULTIVITAMIN [Concomitant]

REACTIONS (5)
  - DIARRHOEA [None]
  - LYMPHADENOPATHY [None]
  - NAUSEA [None]
  - RASH [None]
  - VISION BLURRED [None]
